FAERS Safety Report 4639349-6 (Version None)
Quarter: 2005Q2

REPORT INFORMATION
  Report Type: 
  Country: None (occurrence: None)
  Receive Date: 20050418
  Receipt Date: 20050406
  Transmission Date: 20051028
  Serious: Yes (Hospitalization, Other)
  Sender: FDA-Public Use
  Company Number: 2005034793

PATIENT
  Age: 83 Year
  Sex: Female
  Weight: 73.0291 kg

DRUGS (1)
  1. CELEBREX [Suspect]
     Indication: SURGERY
     Dosage: 200 MG (200 MG, 1 IN 1 D), ORAL
     Route: 048
     Dates: start: 19990510

REACTIONS (9)
  - ASTHENIA [None]
  - DYSURIA [None]
  - EATING DISORDER [None]
  - GASTRIC PERFORATION [None]
  - GASTROINTESTINAL DISORDER [None]
  - ILL-DEFINED DISORDER [None]
  - PARKINSON'S DISEASE [None]
  - VISUAL ACUITY REDUCED [None]
  - WEIGHT DECREASED [None]
